FAERS Safety Report 11857513 (Version 1)
Quarter: 2015Q4

REPORT INFORMATION
  Report Type: Spontaneous
  Country: US (occurrence: US)
  Receive Date: 20151221
  Receipt Date: 20151221
  Transmission Date: 20160305
  Serious: Yes (Other)
  Sender: FDA-Public Use
  Company Number: US-BRISTOL-MYERS SQUIBB COMPANY-BMS-2015-086388

PATIENT
  Sex: Female

DRUGS (2)
  1. SOVALDI [Suspect]
     Active Substance: SOFOSBUVIR
     Indication: HEPATITIS C
     Dosage: UNK
     Route: 065
  2. DAKLINZA [Suspect]
     Active Substance: DACLATASVIR
     Indication: HEPATITIS C
     Dosage: 60 MG, UNK
     Route: 065
     Dates: start: 2015

REACTIONS (11)
  - Migraine [Unknown]
  - Nausea [Unknown]
  - Hepatic pain [Unknown]
  - Hiatus hernia [Unknown]
  - Ulcer [Unknown]
  - Dyspepsia [Unknown]
  - Fatigue [Unknown]
  - Gastritis [Unknown]
  - Pancreatitis chronic [Unknown]
  - Malaise [Unknown]
  - Bedridden [Unknown]
